FAERS Safety Report 21656396 (Version 1)
Quarter: 2022Q4

REPORT INFORMATION
  Report Type: Spontaneous
  Country: TW (occurrence: TW)
  Receive Date: 20221129
  Receipt Date: 20221129
  Transmission Date: 20230112
  Serious: Yes (Life-Threatening, Other)
  Sender: FDA-Public Use
  Company Number: TW-002147023-NVSC2022TW210147

PATIENT
  Age: 16 Year
  Sex: Female
  Weight: 40.4 kg

DRUGS (17)
  1. GEMCITABINE [Suspect]
     Active Substance: GEMCITABINE
     Indication: Sarcoma
     Dosage: 900 MG/M2, Q3W
     Route: 065
  2. GEMCITABINE [Suspect]
     Active Substance: GEMCITABINE
     Dosage: 900 MG/M2, Q3W (8 TIMES, PORT-A-CATH)
     Route: 065
     Dates: start: 20220530, end: 20220816
  3. PAZOPANIB [Suspect]
     Active Substance: PAZOPANIB
     Indication: Sarcoma
     Dosage: UNK UNK, QD
     Route: 048
     Dates: start: 20220909, end: 20221114
  4. IFOSFAMIDE [Concomitant]
     Active Substance: IFOSFAMIDE
     Indication: Sarcoma
     Dosage: 1.8 UNK (G/M2) (20 TIMES; PORT-A-CATH)
     Route: 065
     Dates: start: 20211116, end: 20220318
  5. CARBOPLATIN [Concomitant]
     Active Substance: CARBOPLATIN
     Indication: Sarcoma
     Dosage: 400 MG/M2, QD (PORT-A-CATH-8 TIMES)
     Route: 065
     Dates: start: 20211116, end: 20220315
  6. ETOPOSIDE [Concomitant]
     Active Substance: ETOPOSIDE
     Indication: Sarcoma
     Dosage: 100 MG/M2, QD (PORT-A-CATH; 20 TIMES)
     Route: 065
     Dates: start: 20211116, end: 20220318
  7. DOCETAXEL [Concomitant]
     Active Substance: DOCETAXEL
     Indication: Sarcoma
     Dosage: 75 MG/M2 (2 CYCLES) (ON DAYS 8) (REPEATED EVERY 3 WEEKS)
     Route: 065
     Dates: start: 20220606, end: 20220816
  8. PIPERACILLIN SODIUM\TAZOBACTAM SODIUM [Concomitant]
     Active Substance: PIPERACILLIN SODIUM\TAZOBACTAM SODIUM
     Indication: Product used for unknown indication
     Dosage: 1 DAY (2 VIAL) ST
     Route: 065
     Dates: start: 20220907
  9. PIPERACILLIN SODIUM\TAZOBACTAM SODIUM [Concomitant]
     Active Substance: PIPERACILLIN SODIUM\TAZOBACTAM SODIUM
     Dosage: 2 DAY/2 VIAL, Q6H
     Route: 065
     Dates: start: 20220908
  10. PIPERACILLIN SODIUM\TAZOBACTAM SODIUM [Concomitant]
     Active Substance: PIPERACILLIN SODIUM\TAZOBACTAM SODIUM
     Dosage: 5 DAY/ 2 VITAL (ST)
     Route: 065
     Dates: start: 20220911
  11. CINOLONE [Concomitant]
     Indication: Product used for unknown indication
     Dosage: 2 DOSAGE FORM, Q12H (1 DAY/2 TABLET)
     Route: 065
     Dates: start: 20220908
  12. CINOLONE [Concomitant]
     Dosage: 2 DOSAGE FORM, Q12H (2DAY/2 TAB)
     Route: 065
     Dates: start: 20220909
  13. CINOLONE [Concomitant]
     Dosage: 2 DOSAGE FORM, Q12H (2TAB/3 DAY)
     Route: 065
     Dates: start: 20220910
  14. CINOLONE [Concomitant]
     Dosage: 2 DOSAGE FORM, Q12H (4DAY/2 TAB)
     Route: 065
     Dates: start: 20220911
  15. ZITHROMAX [Concomitant]
     Active Substance: AZITHROMYCIN DIHYDRATE
     Indication: Product used for unknown indication
     Dosage: 2 DOSAGE FORM, QD (2 TAB/ 1 DAY)
     Route: 065
     Dates: start: 20220906
  16. ZITHROMAX [Concomitant]
     Active Substance: AZITHROMYCIN DIHYDRATE
     Dosage: 2 DOSAGE FORM, QD (2 TAB/2DAY)
     Route: 065
     Dates: start: 20220907
  17. ZITHROMAX [Concomitant]
     Active Substance: AZITHROMYCIN DIHYDRATE
     Dosage: 2 DOSAGE FORM, QD (3 DAY/ 2 TAB)
     Route: 065

REACTIONS (8)
  - Metastases to bone marrow [Not Recovered/Not Resolved]
  - Metastases to pleura [Unknown]
  - Blood lactate dehydrogenase increased [Recovering/Resolving]
  - Blood creatinine decreased [Not Recovered/Not Resolved]
  - Blood potassium decreased [Not Recovered/Not Resolved]
  - Blood urea decreased [Not Recovered/Not Resolved]
  - Breast cancer recurrent [Unknown]
  - Product use in unapproved indication [Unknown]

NARRATIVE: CASE EVENT DATE: 20211102
